FAERS Safety Report 6166146-5 (Version None)
Quarter: 2009Q2

REPORT INFORMATION
  Report Type: 
  Country: None (occurrence: None)
  Receive Date: 20090422
  Receipt Date: 20090410
  Transmission Date: 20091009
  Serious: Yes (Hospitalization)
  Sender: FDA-Public Use
  Company Number: POMP-1000561

PATIENT
  Age: 17 Month
  Sex: Male

DRUGS (1)
  1. MYOZYME [Suspect]
     Indication: GLYCOGEN STORAGE DISEASE TYPE II
     Dosage: 250 MG, Q2W, INTRAVENOUS
     Route: 042
     Dates: start: 20080415

REACTIONS (14)
  - CLOSTRIDIAL INFECTION [None]
  - COLLAPSE OF LUNG [None]
  - DIAPHRAGM MUSCLE WEAKNESS [None]
  - GASTROSTOMY TUBE INSERTION [None]
  - INCREASED UPPER AIRWAY SECRETION [None]
  - INFUSION RELATED REACTION [None]
  - LUNG INFECTION PSEUDOMONAL [None]
  - PLEURAL EFFUSION [None]
  - PNEUMONIA [None]
  - RESPIRATORY FAILURE [None]
  - RETCHING [None]
  - TRACHEITIS [None]
  - VOCAL CORD PARALYSIS [None]
  - VOMITING [None]
